FAERS Safety Report 4463459-X (Version None)
Quarter: 2004Q3

REPORT INFORMATION
  Report Type: 
  Country: None (occurrence: None)
  Receive Date: 20040928
  Receipt Date: 20040921
  Transmission Date: 20050211
  Serious: Yes (Death)
  Sender: FDA-Public Use
  Company Number: 163-20785-04080089

PATIENT
  Age: 85 Year
  Sex: Male

DRUGS (2)
  1. THALOMID [Suspect]
     Indication: GASTROINTESTINAL CANCER METASTATIC
     Dosage: 200 MG, QHS, ORAL
     Route: 048
     Dates: start: 20040319, end: 20040101
  2. THALOMID [Suspect]
     Indication: METASTASES TO LIVER
     Dosage: 200 MG, QHS, ORAL
     Route: 048
     Dates: start: 20040319, end: 20040101

REACTIONS (1)
  - MYELODYSPLASTIC SYNDROME [None]
